FAERS Safety Report 9117203 (Version 1)
Quarter: 2013Q1

REPORT INFORMATION
  Report Type: Spontaneous
  Country: GB (occurrence: GB)
  Receive Date: 20130128
  Receipt Date: 20130128
  Transmission Date: 20140127
  Serious: Yes (Other)
  Sender: FDA-Public Use
  Company Number: GB-TEVA-370465ISR

PATIENT
  Age: 31 Year
  Sex: Female

DRUGS (1)
  1. ACTIQ [Suspect]
     Indication: PROCEDURAL PAIN
     Dosage: DOSE REDUCED OVER TIME
     Route: 048
     Dates: start: 2007

REACTIONS (5)
  - Aphagia [Unknown]
  - Dental caries [Recovering/Resolving]
  - Tooth disorder [Not Recovered/Not Resolved]
  - Teeth brittle [Not Recovered/Not Resolved]
  - Off label use [Unknown]
